FAERS Safety Report 4342335-7 (Version None)
Quarter: 2004Q2

REPORT INFORMATION
  Report Type: 
  Country: None (occurrence: None)
  Receive Date: 20040416
  Receipt Date: 20040408
  Transmission Date: 20050107
  Serious: Yes (Hospitalization)
  Sender: FDA-Public Use
  Company Number: STA-AE-03-MTX-140

PATIENT
  Age: 65 Year
  Sex: Female

DRUGS (8)
  1. METHOTREXATE [Suspect]
     Indication: RHEUMATOID ARTHRITIS
     Dosage: 10 MG 1X PER 1 WK; ORAL
     Route: 048
     Dates: start: 20000701, end: 20031113
  2. METHOTREXATE [Suspect]
     Indication: RHEUMATOID ARTHRITIS
     Dosage: 25MG 2X PER 1 WK; SC
     Route: 058
     Dates: start: 20031115
  3. ENBREL [Suspect]
     Indication: RHEUMATOID ARTHRITIS
     Dosage: 25 MG 2X 1 WK; SC
     Route: 058
     Dates: start: 20020401, end: 20031113
  4. ENBREL [Suspect]
     Indication: RHEUMATOID ARTHRITIS
     Dosage: 25 MG 2X PER 1 WK; SC
     Route: 058
     Dates: start: 20031115
  5. PREDNISONE [Concomitant]
  6. CELEBREX [Concomitant]
  7. ULTRACET [Concomitant]
  8. DITROPAN [Concomitant]

REACTIONS (9)
  - ASPARTATE AMINOTRANSFERASE INCREASED [None]
  - BLOOD GLUCOSE INCREASED [None]
  - CHRONIC OBSTRUCTIVE AIRWAYS DISEASE EXACERBATED [None]
  - IMMUNOSUPPRESSION [None]
  - INTERNATIONAL NORMALISED RATIO DECREASED [None]
  - LUNG INFECTION [None]
  - NEUTROPHIL TOXIC GRANULATION PRESENT [None]
  - PROTHROMBIN TIME SHORTENED [None]
  - WHITE BLOOD CELL COUNT INCREASED [None]
